FAERS Safety Report 8694567 (Version 2)
Quarter: 2013Q4

REPORT INFORMATION
  Report Type: Spontaneous
  Country: US (occurrence: US)
  Receive Date: 20120731
  Receipt Date: 20131101
  Transmission Date: 20140711
  Serious: No
  Sender: FDA-Public Use
  Company Number: US-009507513-1207USA005951

PATIENT
  Age: 52 Year
  Sex: Female

DRUGS (2)
  1. JANUMET XR [Suspect]
     Dosage: 1000MG/50MG
     Route: 048
     Dates: start: 20120617
  2. VICTOZA [Concomitant]
     Indication: TYPE 2 DIABETES MELLITUS

REACTIONS (1)
  - Rash [Not Recovered/Not Resolved]
